FAERS Safety Report 9341526 (Version 1)
Quarter: 2013Q2

REPORT INFORMATION
  Report Type: Spontaneous
  Country: US (occurrence: US)
  Receive Date: 20130611
  Receipt Date: 20130611
  Transmission Date: 20140414
  Serious: No
  Sender: FDA-Public Use
  Company Number: US-009507513-1306USA003325

PATIENT
  Age: 42 Year
  Sex: 0

DRUGS (1)
  1. PEGINTRON [Suspect]
     Dosage: UNK, REDIPEN
     Route: 058

REACTIONS (3)
  - Circumstance or information capable of leading to medication error [Unknown]
  - Product quality issue [Unknown]
  - No adverse event [Unknown]
